FAERS Safety Report 11004580 (Version 2)
Quarter: 2015Q2

REPORT INFORMATION
  Report Type: Spontaneous
  Country: US (occurrence: US)
  Receive Date: 20150409
  Receipt Date: 20150506
  Transmission Date: 20150821
  Serious: Yes (Death, Other)
  Sender: FDA-Public Use
  Company Number: US-ASTELLAS-2015US011646

PATIENT
  Age: 79 Year
  Sex: Male

DRUGS (1)
  1. XTANDI [Suspect]
     Active Substance: ENZALUTAMIDE
     Indication: PROSTATE CANCER
     Dosage: 160 MG, ONCE DAILY BY MOUTH
     Route: 048
     Dates: start: 20141107, end: 201412

REACTIONS (2)
  - Malignant neoplasm progression [Fatal]
  - Sepsis [Fatal]

NARRATIVE: CASE EVENT DATE: 20150104
